FAERS Safety Report 10507691 (Version 1)
Quarter: 2014Q3

REPORT INFORMATION
  Report Type: Spontaneous
  Country: US (occurrence: None)
  Receive Date: 20140915
  Receipt Date: 20140915
  Transmission Date: 20150326
  Serious: Yes (Other)
  Sender: FDA-Public Use
  Company Number: 2013-US-001972

PATIENT
  Age: 33 Year
  Sex: Male
  Weight: 117.9 kg

DRUGS (9)
  1. NEURONTIN [Concomitant]
     Active Substance: GABAPENTIN
  2. RESTORIL [Concomitant]
     Active Substance: TEMAZEPAM
  3. XYREM [Suspect]
     Active Substance: SODIUM OXYBATE
     Indication: PAIN
     Route: 048
     Dates: start: 201304, end: 2013
  4. VALIUM [Concomitant]
     Active Substance: DIAZEPAM
  5. PERCOCET [Concomitant]
     Active Substance: ACETAMINOPHEN\OXYCODONE HYDROCHLORIDE
  6. WELLBUTRIN [Concomitant]
     Active Substance: BUPROPION HYDROCHLORIDE
  7. MOBIC [Concomitant]
     Active Substance: MELOXICAM
  8. CYMBALTA [Concomitant]
     Active Substance: DULOXETINE HYDROCHLORIDE
  9. MORPHINE SULFATE. [Concomitant]
     Active Substance: MORPHINE SULFATE

REACTIONS (4)
  - Insomnia [None]
  - Irritability [None]
  - Depression [None]
  - Mood swings [None]

NARRATIVE: CASE EVENT DATE: 2013
